FAERS Safety Report 26020945 (Version 1)
Quarter: 2025Q4

REPORT INFORMATION
  Report Type: Spontaneous
  Country: CN (occurrence: CN)
  Receive Date: 20251110
  Receipt Date: 20251110
  Transmission Date: 20260117
  Serious: Yes (Hospitalization, Disabling, Other)
  Sender: DAIICHI
  Company Number: CN-DSJP-DS-2025-173605-CN

PATIENT
  Age: 32 Year
  Sex: Female
  Weight: 50 kg

DRUGS (7)
  1. TRASTUZUMAB DERUXTECAN [Suspect]
     Active Substance: TRASTUZUMAB DERUXTECAN
     Indication: Targeted cancer therapy
     Dosage: 280 MG, ONCE EVERY 3 WK
     Route: 041
     Dates: start: 20250403, end: 20250403
  2. TRASTUZUMAB DERUXTECAN [Suspect]
     Active Substance: TRASTUZUMAB DERUXTECAN
     Dosage: 280 MG, ONCE EVERY 3 WK
     Route: 041
     Dates: start: 20250505, end: 20250505
  3. TRASTUZUMAB DERUXTECAN [Suspect]
     Active Substance: TRASTUZUMAB DERUXTECAN
     Dosage: 280 MG, ONCE EVERY 3 WK
     Route: 041
     Dates: start: 20250609, end: 20250609
  4. TRASTUZUMAB DERUXTECAN [Suspect]
     Active Substance: TRASTUZUMAB DERUXTECAN
     Dosage: 280 MG, ONCE EVERY 3 WK
     Route: 041
     Dates: start: 20250708, end: 20250708
  5. TRASTUZUMAB DERUXTECAN [Suspect]
     Active Substance: TRASTUZUMAB DERUXTECAN
     Dosage: 200 MG, ONCE EVERY 3 WK
     Route: 041
     Dates: start: 20250804, end: 20250804
  6. TRASTUZUMAB DERUXTECAN [Suspect]
     Active Substance: TRASTUZUMAB DERUXTECAN
     Dosage: 200 MG, ONCE EVERY 3 WK
     Route: 041
     Dates: start: 20250830, end: 20250830
  7. TRASTUZUMAB DERUXTECAN [Suspect]
     Active Substance: TRASTUZUMAB DERUXTECAN
     Dosage: 200 MG, ONCE EVERY 3 WK
     Route: 041
     Dates: start: 20250927, end: 20250927

REACTIONS (2)
  - Hepatic function abnormal [Not Recovered/Not Resolved]
  - Myelosuppression [Unknown]

NARRATIVE: CASE EVENT DATE: 20250101
